FAERS Safety Report 24611438 (Version 3)
Quarter: 2025Q4

REPORT INFORMATION
  Report Type: Report from Study
  Country: CA (occurrence: CA)
  Receive Date: 20241113
  Receipt Date: 20251222
  Transmission Date: 20260117
  Serious: Yes (Other)
  Sender: SANDOZ
  Company Number: CA-002147023-NVSC2021CA098550

PATIENT
  Age: 45 Year
  Sex: Female

DRUGS (15)
  1. RITUXIMAB [Suspect]
     Active Substance: RITUXIMAB
     Indication: Relapsing-remitting multiple sclerosis
     Dosage: 1000 MG Q6MOS;EVERY 6 MONTHS (Q 24 WEEKS)
  2. RITUXIMAB [Suspect]
     Active Substance: RITUXIMAB
     Indication: Multiple sclerosis
     Dosage: 1000 MG
  3. RITUXIMAB [Suspect]
     Active Substance: RITUXIMAB
     Dosage: 1000 MG, Q2W (1000MG IV Q2WEEKS X 2 DOSES (INFUSE AT MIN OF 4.25H) THEN 1000MG IV Q6MONTHS (INFUSE AT MIN OF 3.25H))
  4. RITUXIMAB [Suspect]
     Active Substance: RITUXIMAB
     Dosage: 1000 MG
  5. RITUXIMAB [Suspect]
     Active Substance: RITUXIMAB
     Dosage: 1000 MG
  6. RITUXIMAB [Suspect]
     Active Substance: RITUXIMAB
     Dosage: 1000 MG
  7. RITUXIMAB [Suspect]
     Active Substance: RITUXIMAB
     Dosage: 1000 MG; FORMULATION: VIAL
  8. RITUXIMAB [Suspect]
     Active Substance: RITUXIMAB
     Dosage: 1000 MG Q6MOS;EVERY 6 MONTHS (Q 24 WEEKS)
  9. RITUXIMAB [Suspect]
     Active Substance: RITUXIMAB
     Dosage: 1000 MG Q6MOS;EVERY 6 MONTHS (Q 24 WEEKS)
  10. LEVOFLOXACIN [Suspect]
     Active Substance: LEVOFLOXACIN
     Indication: Product used for unknown indication
     Dosage: UNK
  11. DIPHENHYDRAMINE [Concomitant]
     Active Substance: DIPHENHYDRAMINE
     Indication: Premedication
     Dosage: 50 MG
  12. METHYLPREDNISOLONE [Concomitant]
     Active Substance: METHYLPREDNISOLONE
     Indication: Premedication
     Dosage: 100 MG
  13. ACETAMINOPHEN [Concomitant]
     Active Substance: ACETAMINOPHEN
     Indication: Premedication
     Dosage: 650 MG
  14. ALLEGRA [Concomitant]
     Active Substance: FEXOFENADINE HYDROCHLORIDE
     Indication: Seasonal allergy
     Dosage: UNK
  15. HYDROCORTISONE [Concomitant]
     Active Substance: HYDROCORTISONE
     Indication: Skin irritation
     Dosage: UNK

REACTIONS (8)
  - Gastric ulcer [Recovered/Resolved]
  - Urinary tract infection [Recovering/Resolving]
  - Fatigue [Not Recovered/Not Resolved]
  - Drug hypersensitivity [Unknown]
  - Pruritus [Not Recovered/Not Resolved]
  - Urticaria [Not Recovered/Not Resolved]
  - Off label use [Unknown]
  - Inappropriate schedule of product administration [Unknown]

NARRATIVE: CASE EVENT DATE: 20210424
